FAERS Safety Report 15490127 (Version 7)
Quarter: 2019Q3

REPORT INFORMATION
  Report Type: Report from Study
  Country: TW (occurrence: TW)
  Receive Date: 20181011
  Receipt Date: 20190903
  Transmission Date: 20191004
  Serious: Yes (Hospitalization)
  Sender: FDA-Public Use
  Company Number: TW-TAKEDA-2018TUS028372

PATIENT
  Age: 44 Year
  Sex: Female

DRUGS (2)
  1. AZATHIOPRINE. [Suspect]
     Active Substance: AZATHIOPRINE
     Indication: PRODUCT USED FOR UNKNOWN INDICATION
     Dosage: UNK
     Route: 065
     Dates: end: 20180921
  2. VEDOLIZUMAB [Suspect]
     Active Substance: VEDOLIZUMAB
     Indication: COLITIS ULCERATIVE
     Dosage: 300 MILLIGRAM
     Route: 042
     Dates: start: 20180803, end: 20190130

REACTIONS (9)
  - Aspartate aminotransferase increased [Unknown]
  - Dizziness [Unknown]
  - Abdominal pain lower [Unknown]
  - Mucous stools [Unknown]
  - Syncope [Unknown]
  - Diarrhoea [Unknown]
  - Colitis ulcerative [Unknown]
  - Alanine aminotransferase increased [Unknown]
  - Influenza [Unknown]
